FAERS Safety Report 21500915 (Version 7)
Quarter: 2023Q2

REPORT INFORMATION
  Report Type: Report from Study
  Country: AR (occurrence: AR)
  Receive Date: 20221025
  Receipt Date: 20230629
  Transmission Date: 20230722
  Serious: Yes (Death, Hospitalization)
  Sender: FDA-Public Use
  Company Number: AR-NOVARTISPH-NVSC2022AR237450

PATIENT
  Age: 67 Year
  Sex: Female

DRUGS (7)
  1. MEKINIST [Suspect]
     Active Substance: TRAMETINIB DIMETHYL SULFOXIDE
     Indication: Colorectal cancer metastatic
     Dosage: 1.5 MG
     Route: 048
     Dates: start: 20220831, end: 20221014
  2. MEKINIST [Suspect]
     Active Substance: TRAMETINIB DIMETHYL SULFOXIDE
     Dosage: 1 MG (DOSE REDUCED)
     Route: 048
     Dates: start: 20221103
  3. NIVOLUMAB [Suspect]
     Active Substance: NIVOLUMAB
     Indication: Colorectal cancer metastatic
     Dosage: 282 MG
     Route: 042
     Dates: start: 20220831, end: 20221006
  4. NIVOLUMAB [Suspect]
     Active Substance: NIVOLUMAB
     Dosage: 285 MG
     Route: 042
     Dates: start: 20221130
  5. IPILIMUMAB [Suspect]
     Active Substance: IPILIMUMAB
     Indication: Colorectal cancer metastatic
     Dosage: 47 MG
     Route: 042
     Dates: start: 20220831, end: 20220831
  6. IPILIMUMAB [Suspect]
     Active Substance: IPILIMUMAB
     Dosage: 47.5 MG
     Route: 042
     Dates: start: 20221103
  7. LEVOTHYROXINE [Concomitant]
     Active Substance: LEVOTHYROXINE
     Indication: Product used for unknown indication
     Dosage: 100 UG
     Route: 048
     Dates: start: 2020

REACTIONS (3)
  - Fatigue [Recovered/Resolved]
  - Diarrhoea [Recovered/Resolved]
  - Disease progression [Fatal]

NARRATIVE: CASE EVENT DATE: 20221014
